FAERS Safety Report 9439070 (Version 1)
Quarter: 2013Q3

REPORT INFORMATION
  Report Type: Spontaneous
  Country: US (occurrence: US)
  Receive Date: 20130802
  Receipt Date: 20130802
  Transmission Date: 20140515
  Serious: Yes (Disabling)
  Sender: FDA-Public Use
  Company Number: US-US-EMD SERONO, INC.-7068834

PATIENT
  Sex: Female

DRUGS (1)
  1. REBIF [Suspect]
     Indication: MULTIPLE SCLEROSIS
     Route: 058
     Dates: start: 20100215

REACTIONS (8)
  - Multiple sclerosis [Not Recovered/Not Resolved]
  - Injection site erythema [Unknown]
  - Injection site bruising [Unknown]
  - Injection site nodule [Unknown]
  - Injection site warmth [Recovered/Resolved]
  - Injection site pain [Unknown]
  - Injection site induration [Unknown]
  - Influenza like illness [Unknown]
